FAERS Safety Report 8825259 (Version 1)
Quarter: 2012Q4

REPORT INFORMATION
  Report Type: 
  Country: US (occurrence: US)
  Receive Date: 20121004
  Receipt Date: 20121004
  Transmission Date: 20130627
  Serious: No
  Sender: FDA-Public Use
  Company Number: US-BAYER-2012-102105

PATIENT

DRUGS (3)
  1. ALEVE CAPLET/TABLET,MIDOL EXTENDED RELIEF CAPLET [Suspect]
     Indication: PAIN
     Dosage: UNK
     Route: 048
  2. PERCOCET [Concomitant]
     Indication: PAIN
  3. TYLENOL 3 [Concomitant]
     Indication: PAIN

REACTIONS (1)
  - Procedural pain [None]
